FAERS Safety Report 7498843-3 (Version None)
Quarter: 2011Q2

REPORT INFORMATION
  Report Type: 
  Country: None (occurrence: None)
  Receive Date: 20110516
  Receipt Date: 20110504
  Transmission Date: 20111010
  Serious: Yes (Hospitalization)
  Sender: FDA-Public Use
  Company Number: MPS1-1000507

PATIENT
  Age: 27 Year
  Sex: Male
  Weight: 90 kg

DRUGS (6)
  1. ACETAMINOPHEN [Concomitant]
  2. BENADRYL [Concomitant]
  3. LISINOPRIL [Concomitant]
  4. PERCOCET [Concomitant]
  5. ALDURAZYME [Suspect]
     Indication: MUCOPOLYSACCHARIDOSIS I
     Dosage: 26.1 MG, 1X/W, INTRAVENOUS
     Route: 042
  6. ZOLPIDEM TARTRATE [Concomitant]

REACTIONS (3)
  - LYME DISEASE [None]
  - TRANSIENT ISCHAEMIC ATTACK [None]
  - SEPSIS [None]
